FAERS Safety Report 20205817 (Version 2)
Quarter: 2021Q4

REPORT INFORMATION
  Report Type: Spontaneous
  Country: US (occurrence: US)
  Receive Date: 20211220
  Receipt Date: 20211223
  Transmission Date: 20220303
  Serious: Yes (Hospitalization, Other)
  Sender: FDA-Public Use
  Company Number: US-UCBSA-2021059058

PATIENT
  Age: 52 Year
  Sex: Female

DRUGS (10)
  1. LEVETIRACETAM [Suspect]
     Active Substance: LEVETIRACETAM
     Indication: Muscle twitching
     Dosage: 1000 MILLIGRAM
     Route: 042
  2. LEVETIRACETAM [Suspect]
     Active Substance: LEVETIRACETAM
     Dosage: 1500 MILLIGRAM, 2X/DAY (BID)
     Route: 042
  3. LEVETIRACETAM [Suspect]
     Active Substance: LEVETIRACETAM
     Dosage: 500 MILLIGRAM, 2X/DAY (BID)
  4. LEVETIRACETAM [Suspect]
     Active Substance: LEVETIRACETAM
     Dosage: 500 MILLIGRAM AFTER EACH HEMODIALYSIS SESSION
     Route: 042
  5. LACOSAMIDE [Suspect]
     Active Substance: LACOSAMIDE
     Indication: Product used for unknown indication
     Dosage: 200 MILLIGRAM, 2X/DAY (BID)
  6. LORAZEPAM [Concomitant]
     Active Substance: LORAZEPAM
     Indication: Epilepsy
     Dosage: 6 MILLIGRAM
     Route: 042
  7. PROPOFOL [Concomitant]
     Active Substance: PROPOFOL
     Indication: Sedation
  8. PROPOFOL [Concomitant]
     Active Substance: PROPOFOL
     Dosage: STEP-WISE UPTITRATION
  9. PROPOFOL [Concomitant]
     Active Substance: PROPOFOL
     Dosage: 60 MICROGRAM/KILOGRAM
  10. DEXMEDETOMIDINE HYDROCHLORIDE [Concomitant]
     Active Substance: DEXMEDETOMIDINE HYDROCHLORIDE
     Indication: Sedation
     Dosage: UNK

REACTIONS (4)
  - Drug level increased [Recovered/Resolved]
  - Toxicity to various agents [Recovered/Resolved]
  - Myoclonus [Recovered/Resolved]
  - Status epilepticus [Recovered/Resolved]
